FAERS Safety Report 8537439-9 (Version None)
Quarter: 2012Q3

REPORT INFORMATION
  Report Type: 
  Country: None (occurrence: None)
  Receive Date: 20120725
  Receipt Date: 20120723
  Transmission Date: 20120928
  Serious: Yes (Other)
  Sender: FDA-Public Use
  Company Number: US-PFIZER INC-2012054218

PATIENT
  Sex: Female
  Weight: 54.422 kg

DRUGS (6)
  1. CELEBREX [Suspect]
     Indication: SACROILIITIS
     Dosage: 200 MG, 1 PO Q DAY
     Route: 048
     Dates: start: 20120222, end: 20120228
  2. CELEBREX [Suspect]
     Indication: ARTHRALGIA
  3. ALEVE [Concomitant]
     Indication: MIGRAINE
     Dosage: 20 MG, UNK
  4. IBUPROFEN [Concomitant]
     Dosage: UNK
  5. CELEBREX [Suspect]
     Indication: OSTEOARTHRITIS
     Dosage: 200 MG, DAILY
     Route: 048
     Dates: start: 20120227, end: 20120228
  6. FIORICET [Concomitant]
     Indication: ARTHRALGIA
     Dosage: UNK

REACTIONS (5)
  - HYPERTENSION [None]
  - HEADACHE [None]
  - VOMITING [None]
  - DEHYDRATION [None]
  - BLOOD GLUCOSE INCREASED [None]
